FAERS Safety Report 12731703 (Version 1)
Quarter: 2016Q3

REPORT INFORMATION
  Report Type: Spontaneous
  Country: US (occurrence: US)
  Receive Date: 20160909
  Receipt Date: 20160909
  Transmission Date: 20161109
  Serious: Yes (Life-Threatening, Disabling)
  Sender: FDA-Public Use
  Company Number: None

PATIENT
  Age: 53 Year
  Sex: Female
  Weight: 88.91 kg

DRUGS (16)
  1. LYRICA [Suspect]
     Active Substance: PREGABALIN
     Indication: NEURALGIA
     Route: 048
  2. METOPROLOL. [Concomitant]
     Active Substance: METOPROLOL
  3. IBUPROFEN. [Concomitant]
     Active Substance: IBUPROFEN
  4. ATORVASTATIN [Concomitant]
     Active Substance: ATORVASTATIN
  5. TYLENOL [Concomitant]
     Active Substance: ACETAMINOPHEN
  6. TEDS [Concomitant]
  7. ASA [Concomitant]
     Active Substance: ASPIRIN
  8. GLUCOSAMINE/CONDROINTIN [Concomitant]
  9. LASIX [Concomitant]
     Active Substance: FUROSEMIDE
  10. PEPCID [Concomitant]
     Active Substance: FAMOTIDINE
  11. BENICAR [Concomitant]
     Active Substance: OLMESARTAN MEDOXOMIL
  12. TUMERIC [Concomitant]
     Active Substance: TURMERIC
  13. AMLODIPINE [Concomitant]
     Active Substance: AMLODIPINE BESYLATE
  14. CALCIUM + D [Concomitant]
     Active Substance: CALCIUM\VITAMIN D
  15. ZYRTEC [Concomitant]
     Active Substance: CETIRIZINE HYDROCHLORIDE
  16. MVI [Concomitant]
     Active Substance: VITAMINS

REACTIONS (11)
  - Oedema [None]
  - Oedema peripheral [None]
  - Hypoaesthesia [None]
  - Peripheral vascular disorder [None]
  - Tendonitis [None]
  - Muscle tightness [None]
  - Dyspnoea [None]
  - Paraesthesia [None]
  - Peripheral swelling [None]
  - Meniscus injury [None]
  - Fibromyalgia [None]

NARRATIVE: CASE EVENT DATE: 20141011
